FAERS Safety Report 15306313 (Version 1)
Quarter: 2018Q3

REPORT INFORMATION
  Report Type: Spontaneous
  Country: AT (occurrence: AT)
  Receive Date: 20180822
  Receipt Date: 20180822
  Transmission Date: 20181010
  Serious: Yes (Life-Threatening)
  Sender: FDA-Public Use
  Company Number: AT-ENDO PHARMACEUTICALS INC-2018-040696

PATIENT
  Age: 70 Year
  Sex: Male
  Weight: 95 kg

DRUGS (3)
  1. TRANSTEC [Concomitant]
     Active Substance: BUPRENORPHINE
     Dosage: 35 ?G, UNKNOWN
     Route: 065
  2. AVEED [Suspect]
     Active Substance: TESTOSTERONE UNDECANOATE
     Indication: KLINEFELTER^S SYNDROME
     Dosage: 1000 MG/4 MG INJECTION, SOLUTION, SINCE 10 YEARS, 1 AMPULE, EVERY 3 MONTHS
     Route: 030
     Dates: start: 2008, end: 201807
  3. TRANSTEC [Concomitant]
     Active Substance: BUPRENORPHINE
     Indication: PAIN
     Dosage: 52.5 ?G, UNKNOWN
     Route: 065

REACTIONS (6)
  - Respiratory distress [Recovered/Resolved]
  - Pain in extremity [Recovered/Resolved]
  - Breast pain [Recovered/Resolved]
  - Blood glucose increased [Recovered/Resolved]
  - Hypersensitivity [Recovered/Resolved]
  - Fatigue [Recovered/Resolved]

NARRATIVE: CASE EVENT DATE: 20180719
